FAERS Safety Report 7158002-0 (Version None)
Quarter: 2010Q4

REPORT INFORMATION
  Report Type: 
  Country: None (occurrence: None)
  Receive Date: 20101214
  Receipt Date: 20100419
  Transmission Date: 20110411
  Serious: No
  Sender: FDA-Public Use
  Company Number: US-ASTRAZENECA-2010SE17264

PATIENT
  Age: 63 Year
  Sex: Female
  Weight: 72.6 kg

DRUGS (4)
  1. CRESTOR [Suspect]
     Route: 048
     Dates: start: 20100413
  2. SYNTHROID [Concomitant]
  3. ALLEGRA D 24 HOUR [Concomitant]
  4. VITAMINS [Concomitant]

REACTIONS (1)
  - SCIATICA [None]
